FAERS Safety Report 9852427 (Version 2)
Quarter: 2014Q1

REPORT INFORMATION
  Report Type: Spontaneous
  Country: IT (occurrence: IT)
  Receive Date: 20140129
  Receipt Date: 20140205
  Transmission Date: 20141002
  Serious: Yes (Hospitalization)
  Sender: FDA-Public Use
  Company Number: IT-ABBVIE-14P-083-1195605-00

PATIENT
  Age: 38 Year
  Sex: Male

DRUGS (3)
  1. DEPAKIN [Suspect]
     Indication: DRUG ABUSE
     Route: 048
     Dates: start: 20131109, end: 20131109
  2. HALOPERIDOL DECANOATE [Suspect]
     Indication: DRUG ABUSE
     Route: 048
     Dates: start: 20131108, end: 20131108
  3. TEGRETOL [Suspect]
     Indication: DRUG ABUSE
     Dates: start: 20131109, end: 20131109

REACTIONS (2)
  - Drug abuse [Not Recovered/Not Resolved]
  - Coma [Not Recovered/Not Resolved]
